FAERS Safety Report 6112316-1 (Version None)
Quarter: 2009Q1

REPORT INFORMATION
  Report Type: 
  Country: None (occurrence: None)
  Receive Date: 20090311
  Receipt Date: 20090311
  Transmission Date: 20090719
  Serious: Yes (Life-Threatening, Disabling)
  Sender: FDA-Public Use
  Company Number: None

PATIENT
  Sex: Female
  Weight: 65.7716 kg

DRUGS (1)
  1. FENTANYL-25 [Suspect]
     Indication: PAIN
     Dosage: 2007 AT TIME OF SURGERY
     Dates: start: 20070101

REACTIONS (4)
  - AMNESIA [None]
  - DYSPNOEA [None]
  - FALL [None]
  - RESPIRATORY DISORDER [None]
